FAERS Safety Report 19880829 (Version 4)
Quarter: 2022Q1

REPORT INFORMATION
  Report Type: Report from Study
  Country: CN (occurrence: CN)
  Receive Date: 20210925
  Receipt Date: 20220324
  Transmission Date: 20220423
  Serious: Yes (Hospitalization, Other)
  Sender: FDA-Public Use
  Company Number: CN-NOVARTISPH-NVSC2021CN213305

PATIENT
  Age: 64 Year
  Sex: Female
  Weight: 48.5 kg

DRUGS (4)
  1. ENTRESTO [Suspect]
     Active Substance: SACUBITRIL\VALSARTAN
     Indication: Cardiac failure
     Dosage: 25 MG, BID
     Route: 048
     Dates: start: 20201201
  2. ENTRESTO [Suspect]
     Active Substance: SACUBITRIL\VALSARTAN
     Dosage: 25 MG
     Route: 065
     Dates: start: 20210425
  3. FUROSEMIDE [Concomitant]
     Active Substance: FUROSEMIDE
     Indication: Cardiac failure
     Dosage: 20 MG, UNKNOWN
     Route: 065
     Dates: start: 20210422
  4. SPIRONOLACTONE [Concomitant]
     Active Substance: SPIRONOLACTONE
     Indication: Cardiac failure
     Dosage: 20 MG, UNKNOWN
     Route: 065
     Dates: start: 20210422

REACTIONS (11)
  - Cardiac failure [Recovering/Resolving]
  - Arrhythmia [Recovering/Resolving]
  - Chest discomfort [Recovering/Resolving]
  - Cardiomegaly [Recovering/Resolving]
  - Cardiac murmur [Recovering/Resolving]
  - Rales [Recovering/Resolving]
  - Heart rate decreased [Recovering/Resolving]
  - Heart sounds abnormal [Recovering/Resolving]
  - Breath sounds abnormal [Recovering/Resolving]
  - Underdose [Unknown]
  - Wrong technique in product usage process [Unknown]

NARRATIVE: CASE EVENT DATE: 20201201
